FAERS Safety Report 9164995 (Version 2)
Quarter: 2013Q1

REPORT INFORMATION
  Report Type: Spontaneous
  Country: US (occurrence: None)
  Receive Date: 20130228
  Receipt Date: 20130308
  Transmission Date: 20140127
  Serious: Yes (Other)
  Sender: FDA-Public Use
  Company Number: JPI-P-029930

PATIENT
  Age: 50 Year
  Sex: Female

DRUGS (1)
  1. XYREM (500 MILLIGRAM/MILLILITERS, SOLUTION) (SODIUM OXYBATE) [Suspect]
     Indication: NARCOLEPSY
     Dosage: (4 GM 1ST, 2 GM 2ND DOSE), ORAL
     Route: 048
     Dates: start: 20070614

REACTIONS (2)
  - Migraine [None]
  - Breast discharge [None]
